FAERS Safety Report 9402323 (Version 1)
Quarter: 2013Q3

REPORT INFORMATION
  Report Type: Spontaneous
  Country: BR (occurrence: BR)
  Receive Date: 20130716
  Receipt Date: 20130716
  Transmission Date: 20140515
  Serious: Yes (Other)
  Sender: FDA-Public Use
  Company Number: BR-PFIZER INC-2013204665

PATIENT
  Age: 66 Year
  Sex: Female

DRUGS (2)
  1. LYRICA [Suspect]
     Indication: HERPES VIRUS INFECTION
     Dosage: 75 MG, 2X/DAY
     Route: 048
     Dates: start: 20130705
  2. CODEIN [Concomitant]
     Indication: PAIN
     Dosage: 30 MG, EVERY 4 HOURS
     Dates: start: 20130705

REACTIONS (5)
  - Off label use [Not Recovered/Not Resolved]
  - Loss of control of legs [Unknown]
  - Feeling abnormal [Unknown]
  - Tremor [Unknown]
  - Somnolence [Unknown]
